FAERS Safety Report 5035231-3 (Version None)
Quarter: 2006Q2

REPORT INFORMATION
  Report Type: 
  Country: None (occurrence: None)
  Receive Date: 20060622
  Receipt Date: 20060622
  Transmission Date: 20061013
  Serious: Yes (Hospitalization)
  Sender: FDA-Public Use
  Company Number: None

PATIENT
  Age: 47 Year
  Sex: Female

DRUGS (3)
  1. TARCEVA [Suspect]
     Indication: SQUAMOUS CELL CARCINOMA
     Dosage: 150 MG DAILY PO
     Route: 048
     Dates: start: 20050921, end: 20051228
  2. ALIMTA [Concomitant]
  3. GEMZAR [Concomitant]

REACTIONS (2)
  - AGRANULOCYTOSIS [None]
  - PYREXIA [None]
